FAERS Safety Report 18556656 (Version 1)
Quarter: 2020Q4

REPORT INFORMATION
  Report Type: Spontaneous
  Country: US (occurrence: US)
  Receive Date: 20201128
  Receipt Date: 20201128
  Transmission Date: 20210114
  Serious: Yes (Hospitalization)
  Sender: FDA-Public Use
  Company Number: US-TAKEDA-2020TUS051914

PATIENT
  Sex: Male
  Weight: 123.81 kg

DRUGS (11)
  1. EPINEPHRINE. [Concomitant]
     Active Substance: EPINEPHRINE
  2. IMURAN [Concomitant]
     Active Substance: AZATHIOPRINE
  3. GABAPENTIN. [Concomitant]
     Active Substance: GABAPENTIN
  4. BENADRYL [Concomitant]
     Active Substance: DIPHENHYDRAMINE HYDROCHLORIDE
  5. ASPIRIN [ACETYLSALICYLIC ACID] [Concomitant]
     Active Substance: ASPIRIN
  6. ALEVE [Concomitant]
     Active Substance: NAPROXEN SODIUM
  7. GAMMAGARD LIQUID [Suspect]
     Active Substance: HUMAN IMMUNOGLOBULIN G
     Indication: DEMYELINATING POLYNEUROPATHY
     Dosage: 2000 MILLIGRAM/KILOGRAM, Q4WEEKS
     Route: 042
     Dates: start: 20140707
  8. LIPITOR [Concomitant]
     Active Substance: ATORVASTATIN CALCIUM
  9. HEPARIN [Concomitant]
     Active Substance: HEPARIN SODIUM
  10. NORMAL SALINE [Concomitant]
     Active Substance: SODIUM CHLORIDE
  11. CYMBALTA [Concomitant]
     Active Substance: DULOXETINE HYDROCHLORIDE

REACTIONS (1)
  - Heart rate decreased [Unknown]
